FAERS Safety Report 10210220 (Version 1)
Quarter: 2014Q2

REPORT INFORMATION
  Report Type: Spontaneous
  Country: US (occurrence: US)
  Receive Date: 20140602
  Receipt Date: 20140602
  Transmission Date: 20141212
  Serious: Yes (Other)
  Sender: FDA-Public Use
  Company Number: US-ASTRAZENECA-2014SE37127

PATIENT
  Sex: Female

DRUGS (1)
  1. NEXIUM [Suspect]
     Indication: DYSPEPSIA
     Route: 048

REACTIONS (4)
  - Ankle fracture [Unknown]
  - Fall [Unknown]
  - Upper limb fracture [Unknown]
  - Nephrolithiasis [Unknown]
